FAERS Safety Report 6135519-9 (Version None)
Quarter: 2009Q1

REPORT INFORMATION
  Report Type: 
  Country: None (occurrence: None)
  Receive Date: 20090327
  Receipt Date: 20090320
  Transmission Date: 20090719
  Serious: Yes (Hospitalization)
  Sender: FDA-Public Use
  Company Number: B0565979A

PATIENT
  Age: 7 Year
  Sex: Female
  Weight: 39 kg

DRUGS (6)
  1. ACYCLOVIR [Suspect]
     Dosage: 1500MGM2 PER DAY
     Route: 042
     Dates: start: 20090307
  2. MERCAPTOPURINE [Concomitant]
     Route: 048
  3. METHOTREXATE [Concomitant]
  4. CO-TRIMOXAZOLE [Concomitant]
  5. VINCRISTINE SULFATE [Concomitant]
     Dates: start: 20090210
  6. DEXAMETHASONE [Concomitant]
     Dates: start: 20090210

REACTIONS (5)
  - BLOOD CREATININE INCREASED [None]
  - BLOOD UREA INCREASED [None]
  - HYPERTENSION [None]
  - PYREXIA [None]
  - RENAL FAILURE ACUTE [None]
